FAERS Safety Report 7971292-7 (Version None)
Quarter: 2011Q4

REPORT INFORMATION
  Report Type: 
  Country: None (occurrence: None)
  Receive Date: 20111212
  Receipt Date: 20110802
  Transmission Date: 20120403
  Serious: Yes (Other)
  Sender: FDA-Public Use
  Company Number: US-BRISTOL-MYERS SQUIBB COMPANY-15936636

PATIENT
  Age: 73 Year
  Sex: Female
  Weight: 49 kg

DRUGS (8)
  1. LEVOTHYROXINE SODIUM [Concomitant]
     Dosage: 1DF= 0.25 UNIT NOS.
  2. LEXAPRO [Concomitant]
  3. TRIAZOLAM [Concomitant]
     Dosage: 1DF= 55 UNIT NOS.
  4. MORPHINE SULFATE [Concomitant]
     Dosage: MORPHINE SULFATE ER 45MG 2-3X/DAY.
  5. IXEMPRA KIT [Suspect]
     Dosage: LAST INFUSION ON 28JUL2011. INF:2
     Dates: start: 20110701
  6. WELCHOL [Concomitant]
  7. LOSARTAN POTASSIUM [Concomitant]
  8. OXYCODONE HCL [Concomitant]
     Dosage: (2-3X/DAY) .

REACTIONS (4)
  - NAUSEA [None]
  - ALOPECIA [None]
  - FATIGUE [None]
  - DIZZINESS [None]
